FAERS Safety Report 24408976 (Version 1)
Quarter: 2024Q4

REPORT INFORMATION
  Report Type: Spontaneous
  Country: BY (occurrence: BY)
  Receive Date: 20241007
  Receipt Date: 20241007
  Transmission Date: 20250114
  Serious: Yes (Death, Life-Threatening)
  Sender: JOHNSON AND JOHNSON
  Company Number: BY-JNJFOC-20241014463

PATIENT
  Sex: Female
  Weight: 47 kg

DRUGS (7)
  1. SIRTURO [Suspect]
     Active Substance: BEDAQUILINE FUMARATE
     Indication: Antibiotic prophylaxis
     Dosage: FOR 2 WEEKS
     Route: 048
     Dates: start: 20240111
  2. SIRTURO [Suspect]
     Active Substance: BEDAQUILINE FUMARATE
     Route: 048
  3. LINEZOLID [Suspect]
     Active Substance: LINEZOLID
     Indication: Antibiotic prophylaxis
     Route: 048
     Dates: start: 20240111
  4. LINEZOLID [Suspect]
     Active Substance: LINEZOLID
     Route: 048
     Dates: start: 20240116
  5. PRETOMANID [Suspect]
     Active Substance: PRETOMANID
     Indication: Antibiotic prophylaxis
     Route: 048
     Dates: start: 20240111
  6. CLOFAZIMINE [Suspect]
     Active Substance: CLOFAZIMINE
     Indication: Antibiotic prophylaxis
     Route: 048
     Dates: start: 20240111
  7. FLUCONAZOLE [Concomitant]
     Active Substance: FLUCONAZOLE
     Indication: Antibiotic prophylaxis
     Route: 065
     Dates: start: 20240111

REACTIONS (3)
  - Cerebral toxoplasmosis [Fatal]
  - Progressive multifocal leukoencephalopathy [Fatal]
  - Anaemia [Not Recovered/Not Resolved]

NARRATIVE: CASE EVENT DATE: 20240115
